FAERS Safety Report 8041866-6 (Version None)
Quarter: 2012Q1

REPORT INFORMATION
  Report Type: 
  Country: None (occurrence: None)
  Receive Date: 20120112
  Receipt Date: 20120112
  Transmission Date: 20120608
  Serious: Yes (Other)
  Sender: FDA-Public Use
  Company Number: None

PATIENT
  Age: 32 Year
  Sex: Female
  Weight: 80 kg

DRUGS (3)
  1. LITHIUM CARBONATE [Suspect]
     Indication: MAJOR DEPRESSION
     Dosage: 500MG
     Route: 048
     Dates: start: 20110607, end: 20111109
  2. EFFEXOR XR [Concomitant]
     Route: 048
  3. VENLAFAXINE HCL [Concomitant]
     Indication: MAJOR DEPRESSION
     Dosage: 225MG
     Route: 048
     Dates: start: 20091026, end: 20120111

REACTIONS (40)
  - TREMOR [None]
  - JAW DISORDER [None]
  - BALANCE DISORDER [None]
  - WEIGHT DECREASED [None]
  - LOSS OF PROPRIOCEPTION [None]
  - PERIODIC LIMB MOVEMENT DISORDER [None]
  - TONGUE DISORDER [None]
  - LACK OF SPONTANEOUS SPEECH [None]
  - APHASIA [None]
  - HYPERHIDROSIS [None]
  - VOCAL CORD DISORDER [None]
  - GAIT DISTURBANCE [None]
  - DYSCALCULIA [None]
  - ELECTROMYOGRAM ABNORMAL [None]
  - PHOTOPHOBIA [None]
  - ACNE [None]
  - INTENTION TREMOR [None]
  - TEMPERATURE INTOLERANCE [None]
  - LARYNGOSPASM [None]
  - COGNITIVE DISORDER [None]
  - NERVOUSNESS [None]
  - MUSCULOSKELETAL STIFFNESS [None]
  - ACTIVITIES OF DAILY LIVING IMPAIRED [None]
  - CHILLS [None]
  - VISION BLURRED [None]
  - SPEECH DISORDER [None]
  - TOXICITY TO VARIOUS AGENTS [None]
  - HYPERACUSIS [None]
  - DYSGRAPHIA [None]
  - MASTICATION DISORDER [None]
  - DYSPHAGIA [None]
  - MOTOR DYSFUNCTION [None]
  - AMNESIA [None]
  - ATAXIA [None]
  - MYOCLONUS [None]
  - EXAGGERATED STARTLE RESPONSE [None]
  - POSTURING [None]
  - DYSPHONIA [None]
  - SENSORY DISTURBANCE [None]
  - ARTHROPATHY [None]
